FAERS Safety Report 7861224-4 (Version None)
Quarter: 2011Q4

REPORT INFORMATION
  Report Type: 
  Country: None (occurrence: None)
  Receive Date: 20111027
  Receipt Date: 20111021
  Transmission Date: 20120403
  Serious: Yes (Hospitalization)
  Sender: FDA-Public Use
  Company Number: BR-BIOMARINP-002069

PATIENT
  Sex: Male
  Weight: 15.2 kg

DRUGS (2)
  1. POLARAMINE [Concomitant]
     Indication: PREMEDICATION
     Route: 048
  2. NAGLAZYME [Suspect]
     Indication: MUCOPOLYSACCHARIDOSIS VI
     Route: 041
     Dates: start: 20100622

REACTIONS (1)
  - BRAIN INJURY [None]
